FAERS Safety Report 8086784-2 (Version None)
Quarter: 2012Q1

REPORT INFORMATION
  Report Type: 
  Country: None (occurrence: None)
  Receive Date: 20120128
  Receipt Date: 20110614
  Transmission Date: 20120608
  Serious: No
  Sender: FDA-Public Use
  Company Number: US-ABBOTT-11P-163-0732186-00

PATIENT
  Sex: Female
  Weight: 63.56 kg

DRUGS (1)
  1. HUMIRA [Suspect]
     Indication: CROHN'S DISEASE
     Route: 058
     Dates: start: 20100615

REACTIONS (7)
  - WEIGHT INCREASED [None]
  - TONSILLITIS [None]
  - EATING DISORDER SYMPTOM [None]
  - WEIGHT DECREASED [None]
  - DYSPHAGIA [None]
  - CANDIDIASIS [None]
  - FATIGUE [None]
